FAERS Safety Report 15145997 (Version 2)
Quarter: 2018Q3

REPORT INFORMATION
  Report Type: Spontaneous
  Country: US (occurrence: US)
  Receive Date: 20180714
  Receipt Date: 20180806
  Transmission Date: 20181010
  Serious: No
  Sender: FDA-Public Use
  Company Number: PHEH2018US027997

PATIENT
  Sex: Male

DRUGS (2)
  1. AFINITOR [Suspect]
     Active Substance: EVEROLIMUS
     Indication: RENAL CANCER
     Dosage: UNK UNK, QD
     Route: 048
     Dates: start: 20180615
  2. LENVIMA [Suspect]
     Active Substance: LENVATINIB
     Indication: RENAL CANCER
     Route: 048
     Dates: start: 20180615

REACTIONS (6)
  - Glossodynia [Unknown]
  - Dyspnoea [Recovering/Resolving]
  - Oral pain [Unknown]
  - Fatigue [Unknown]
  - Pain [Recovered/Resolved with Sequelae]
  - Rash papular [Unknown]
